FAERS Safety Report 9417526 (Version 1)
Quarter: 2013Q3

REPORT INFORMATION
  Report Type: Spontaneous
  Country: US (occurrence: US)
  Receive Date: 20130724
  Receipt Date: 20130724
  Transmission Date: 20140515
  Serious: No
  Sender: FDA-Public Use
  Company Number: US-BRISTOL-MYERS SQUIBB COMPANY-19042837

PATIENT
  Age: 49 Year
  Sex: Male
  Weight: 129.7 kg

DRUGS (1)
  1. ELIQUIS [Suspect]
     Dates: start: 201303, end: 201306

REACTIONS (1)
  - Erectile dysfunction [Unknown]
